FAERS Safety Report 21925454 (Version 5)
Quarter: 2023Q1

REPORT INFORMATION
  Report Type: Report from Study
  Country: US (occurrence: US)
  Receive Date: 20230130
  Receipt Date: 20230303
  Transmission Date: 20230417
  Serious: Yes (Hospitalization, Other)
  Sender: FDA-Public Use
  Company Number: US-002147023-NVSC2023US016711

PATIENT
  Age: 56 Year
  Sex: Male
  Weight: 93 kg

DRUGS (17)
  1. PIQRAY [Suspect]
     Active Substance: ALPELISIB
     Indication: Squamous cell carcinoma
     Dosage: 250 MG, QD
     Route: 048
     Dates: start: 20221229, end: 20230124
  2. PIQRAY [Suspect]
     Active Substance: ALPELISIB
     Dosage: 200 MG, QD
     Route: 065
     Dates: start: 20230207
  3. VITAMIN D [Concomitant]
     Active Substance: VITAMIN D NOS
     Indication: Supplementation therapy
     Dosage: 25 MCG, QD
     Route: 048
     Dates: start: 2020
  4. LEXAPRO [Concomitant]
     Active Substance: ESCITALOPRAM OXALATE
     Indication: Anxiety
     Dosage: 10 MG, QD
     Route: 048
     Dates: start: 202108, end: 20230206
  5. SYNTHROID [Concomitant]
     Active Substance: LEVOTHYROXINE SODIUM
     Indication: Hypothyroidism
     Dosage: 175 UG, QD
     Route: 048
     Dates: start: 202003
  6. LIDOCAIN HCL [Concomitant]
     Indication: Pain
     Dosage: UNK
     Route: 061
     Dates: start: 201803
  7. ACETAMINOPHEN [Concomitant]
     Active Substance: ACETAMINOPHEN
     Indication: Product used for unknown indication
     Dosage: UNK
     Route: 065
     Dates: start: 2022
  8. PROTONIX [Concomitant]
     Active Substance: PANTOPRAZOLE SODIUM
     Indication: Duodenal ulcer
     Dosage: 40 MG, QD
     Route: 048
     Dates: start: 202108, end: 20221125
  9. ZINC [Concomitant]
     Active Substance: ZINC
     Indication: Supplementation therapy
     Dosage: 30 MG, QD
     Route: 048
     Dates: start: 2020
  10. TYLENOL [Concomitant]
     Active Substance: ACETAMINOPHEN
     Indication: Pain
     Dosage: 325 MG, PRN
     Route: 048
     Dates: start: 2022
  11. VICKS COUGH DROPS [Concomitant]
     Indication: Oropharyngeal pain
     Dosage: 2 DROPS, QD PRN
     Route: 048
     Dates: start: 20230102
  12. OXYCODONE [Concomitant]
     Active Substance: OXYCODONE
     Indication: Odynophagia
     Dosage: 5 MG, Q4H/PRN
     Route: 048
     Dates: start: 20230117, end: 20230123
  13. NYSTATIN [Concomitant]
     Active Substance: NYSTATIN
     Indication: Eschar
     Dosage: 6 ML, TID
     Route: 048
     Dates: start: 20230119
  14. OMEPRAZOLE [Concomitant]
     Active Substance: OMEPRAZOLE
     Indication: Duodenal ulcer
     Dosage: 20 MG, QD
     Route: 048
     Dates: start: 20221201, end: 20221207
  15. OMEPRAZOLE [Concomitant]
     Active Substance: OMEPRAZOLE
     Dosage: UNK
     Route: 065
     Dates: start: 20221214
  16. KENALOG [Concomitant]
     Active Substance: TRIAMCINOLONE ACETONIDE
     Indication: Rash
     Dosage: UNK
     Route: 061
     Dates: start: 20221214
  17. ESOMEPRAZOLE [Concomitant]
     Active Substance: ESOMEPRAZOLE
     Indication: Duodenal ulcer
     Dosage: 20 MG, QD
     Route: 048
     Dates: start: 20221214

REACTIONS (5)
  - Odynophagia [Recovered/Resolved with Sequelae]
  - Malnutrition [Recovered/Resolved with Sequelae]
  - Dysphagia [Recovered/Resolved with Sequelae]
  - Candida infection [Recovered/Resolved]
  - Dehydration [Recovered/Resolved]

NARRATIVE: CASE EVENT DATE: 20230123
